FAERS Safety Report 5272849-7 (Version None)
Quarter: 2007Q1

REPORT INFORMATION
  Report Type: 
  Country: None (occurrence: None)
  Receive Date: 20070322
  Receipt Date: 20070309
  Transmission Date: 20070707
  Serious: Yes (Other)
  Sender: FDA-Public Use
  Company Number: PHBS2007JP04461

PATIENT

DRUGS (1)
  1. LOCHOL [Suspect]
     Route: 048

REACTIONS (1)
  - RENAL FAILURE [None]
